FAERS Safety Report 16246125 (Version 1)
Quarter: 2019Q2

REPORT INFORMATION
  Report Type: Report from Study
  Country: US (occurrence: US)
  Receive Date: 20190426
  Receipt Date: 20190426
  Transmission Date: 20190711
  Serious: Yes (Other)
  Sender: FDA-Public Use
  Company Number: US-SHIRE-US201913174

PATIENT
  Age: 26 Year
  Sex: Male

DRUGS (1)
  1. ADVATE [Suspect]
     Active Substance: ANTIHEMOPHILIC FACTOR, HUMAN RECOMBINANT
     Indication: FACTOR VIII DEFICIENCY
     Dosage: UNK, 3X A WEEK (INFUSIONS)
     Route: 042
     Dates: start: 2016

REACTIONS (2)
  - Joint injury [Unknown]
  - Haemorrhage [Unknown]

NARRATIVE: CASE EVENT DATE: 2016
